FAERS Safety Report 6894001 (Version 8)
Quarter: 2013Q3

REPORT INFORMATION
  Report Type: Spontaneous
  Country: CN (occurrence: CN)
  Receive Date: 20090127
  Receipt Date: 20130927
  Transmission Date: 20140515
  Serious: Yes (Hospitalization, Other)
  Sender: FDA-Public Use
  Company Number: PHHY2009CN02016

PATIENT
  Age: 22 Year
  Sex: Male
  Weight: 60 kg

DRUGS (4)
  1. SEBIVO [Suspect]
     Indication: CHRONIC HEPATITIS B
     Dosage: 600 MG, QD
     Route: 048
     Dates: start: 20080112
  2. SEBIVO [Suspect]
     Dosage: 2 DF, TID
     Route: 048
     Dates: start: 20081226, end: 20081228
  3. PEGASYS [Suspect]
     Indication: CHRONIC HEPATITIS B
     Dosage: 180 UG, QW
     Route: 058
     Dates: start: 200801, end: 20081128
  4. ENTECAVIR [Concomitant]

REACTIONS (42)
  - Asthenia [Recovered/Resolved]
  - Rhabdomyolysis [Recovering/Resolving]
  - Lactic acidosis [Recovering/Resolving]
  - Muscular weakness [Recovering/Resolving]
  - Myalgia [Recovering/Resolving]
  - Alanine aminotransferase increased [Recovered/Resolved]
  - Aspartate aminotransferase increased [Recovered/Resolved]
  - Nausea [Recovered/Resolved]
  - Myoglobin blood increased [Recovered/Resolved]
  - Malaise [Recovered/Resolved]
  - Vomiting [Recovered/Resolved]
  - Urine output decreased [Recovered/Resolved]
  - Blood lactate dehydrogenase increased [Recovered/Resolved]
  - Blood bilirubin increased [Unknown]
  - Blood urea increased [Recovered/Resolved]
  - Blood calcium increased [Recovered/Resolved]
  - Blood uric acid increased [Recovered/Resolved]
  - Blood creatinine decreased [Recovered/Resolved]
  - Blood creatine phosphokinase increased [Recovered/Resolved]
  - C-reactive protein increased [Unknown]
  - Oedema peripheral [Recovered/Resolved]
  - Myocarditis [Unknown]
  - Pneumonia [Recovered/Resolved]
  - Dyspnoea [Recovering/Resolving]
  - Lung infection [Unknown]
  - White blood cell count increased [Unknown]
  - Tachypnoea [Unknown]
  - PO2 increased [Unknown]
  - PCO2 decreased [Unknown]
  - Heart rate increased [Recovered/Resolved]
  - Palpitations [Recovering/Resolving]
  - Cholecystitis chronic [Unknown]
  - Gallbladder polyp [Unknown]
  - Decreased appetite [Unknown]
  - Condition aggravated [Unknown]
  - Myopathy [Recovering/Resolving]
  - Chronic hepatitis B [Unknown]
  - Gamma-glutamyltransferase increased [Unknown]
  - Hepatojugular reflux [Unknown]
  - Chest pain [Recovering/Resolving]
  - Joint swelling [Recovered/Resolved]
  - Fatigue [Unknown]
